FAERS Safety Report 4490989-7 (Version None)
Quarter: 2004Q4

REPORT INFORMATION
  Report Type: 
  Country: None (occurrence: None)
  Receive Date: 20041027
  Receipt Date: 20041013
  Transmission Date: 20050328
  Serious: Yes (Other)
  Sender: FDA-Public Use
  Company Number: 2004238799CL

PATIENT
  Sex: Male
  Weight: 2.3 kg

DRUGS (5)
  1. CARDIZEM [Suspect]
     Indication: PULMONARY HYPERTENSION
     Dosage: 60 MG, DAILY; 180 MG DAILY
  2. SILDENAFIL(SILDENAFIL) [Suspect]
     Indication: PULMONARY HYPERTENSION
     Dosage: 50 MG, ORAL; 150 MG, DAILY, ORAL; 150 MG, DAILY
  3. R-GENE 10 [Suspect]
     Indication: PULMONARY HYPERTENSION
     Dosage: 3 G, DAILY
  4. NIFEDIPINA DOROM(NIFEDIPINE) TABLE [Suspect]
     Dosage: 20 MG, SUBLINGUAL
     Route: 060
  5. OXYGEN [Concomitant]

REACTIONS (7)
  - CAESAREAN SECTION [None]
  - DRUG EXPOSURE DURING PREGNANCY [None]
  - FOETAL DISORDER [None]
  - FOETAL GROWTH RETARDATION [None]
  - MATERNAL CONDITION AFFECTING FOETUS [None]
  - PREMATURE BABY [None]
  - PULMONARY ARTERIAL PRESSURE INCREASED [None]
